FAERS Safety Report 24451050 (Version 5)
Quarter: 2025Q4

REPORT INFORMATION
  Report Type: Report from Study
  Country: US (occurrence: US)
  Receive Date: 20241017
  Receipt Date: 20251008
  Transmission Date: 20260119
  Serious: Yes (Other)
  Sender: TAKEDA
  Company Number: US-TAKEDA-2021TUS083320

PATIENT
  Age: 63 Year
  Sex: Female
  Weight: 54 kg

DRUGS (11)
  1. HUMAN IMMUNOGLOBULIN G [Suspect]
     Active Substance: HUMAN IMMUNOGLOBULIN G
     Indication: Primary immunodeficiency syndrome
     Dosage: 8 GRAM, 1/WEEK
  2. HUMAN IMMUNOGLOBULIN G [Suspect]
     Active Substance: HUMAN IMMUNOGLOBULIN G
     Indication: Congenital hypogammaglobulinaemia
  3. ACETAMINOPHEN [Concomitant]
     Active Substance: ACETAMINOPHEN
     Dosage: UNK
  4. ZINC [Concomitant]
     Active Substance: ZINC
     Dosage: UNK
  5. VITAMIN C [Concomitant]
     Active Substance: ASCORBIC ACID
     Dosage: UNK
  6. VITAMIN D3 [Concomitant]
     Active Substance: CHOLECALCIFEROL
     Dosage: UNK
  7. DIPHENHYDRAMINE HYDROCHLORIDE [Concomitant]
     Active Substance: DIPHENHYDRAMINE HYDROCHLORIDE
     Dosage: UNK
  8. Lmx [Concomitant]
     Dosage: UNK
  9. DIPHENHYDRAMINE [Concomitant]
     Active Substance: DIPHENHYDRAMINE
     Dosage: UNK
  10. EPINEPHRINE [Concomitant]
     Active Substance: EPINEPHRINE
     Dosage: UNK
  11. Sa [Concomitant]
     Dosage: UNK

REACTIONS (32)
  - Transplant rejection [Unknown]
  - Infusion related reaction [Unknown]
  - Weight decreased [Unknown]
  - Peripheral swelling [Not Recovered/Not Resolved]
  - Electrocution [Unknown]
  - Therapeutic response unexpected [Unknown]
  - Multiple allergies [Unknown]
  - Tooth infection [Unknown]
  - Oral infection [Unknown]
  - Productive cough [Unknown]
  - Poor venous access [Unknown]
  - Respiratory disorder [Unknown]
  - Infusion site discharge [Unknown]
  - Seasonal allergy [Unknown]
  - Inappropriate schedule of product administration [Unknown]
  - Product dose omission issue [Unknown]
  - Procedural pain [Unknown]
  - Pollakiuria [Unknown]
  - Product use issue [Unknown]
  - Sinusitis [Unknown]
  - Oropharyngeal pain [Not Recovered/Not Resolved]
  - Influenza like illness [Unknown]
  - Malaise [Unknown]
  - Cough [Unknown]
  - Infusion site bruising [Unknown]
  - Pain [Not Recovered/Not Resolved]
  - Infusion site pain [Unknown]
  - Fatigue [Unknown]
  - Oral pain [Not Recovered/Not Resolved]
  - Localised infection [Recovered/Resolved]
  - Wound infection [Recovered/Resolved]
  - Urticaria [Not Recovered/Not Resolved]

NARRATIVE: CASE EVENT DATE: 20221109
